FAERS Safety Report 13903615 (Version 2)
Quarter: 2017Q4

REPORT INFORMATION
  Report Type: Spontaneous
  Country: JP (occurrence: JP)
  Receive Date: 20170824
  Receipt Date: 20171012
  Transmission Date: 20180320
  Serious: Yes (Other)
  Sender: FDA-Public Use
  Company Number: PHJP2017JP022558

PATIENT
  Age: 5 Year
  Sex: Male

DRUGS (2)
  1. ILARIS [Suspect]
     Active Substance: CANAKINUMAB
     Indication: TUMOUR NECROSIS FACTOR RECEPTOR-ASSOCIATED PERIODIC SYNDROME
     Dosage: 150 MG, UNK
     Route: 058
     Dates: start: 201705, end: 201706
  2. ILARIS [Suspect]
     Active Substance: CANAKINUMAB
     Dosage: 300 MG, UNK
     Route: 058
     Dates: start: 201706

REACTIONS (3)
  - Campylobacter gastroenteritis [Unknown]
  - Diarrhoea [Recovered/Resolved]
  - Pyrexia [Recovered/Resolved]
